FAERS Safety Report 9242206 (Version 1)
Quarter: 2013Q2

REPORT INFORMATION
  Report Type: Spontaneous
  Country: JP (occurrence: JP)
  Receive Date: 20130419
  Receipt Date: 20130419
  Transmission Date: 20140414
  Serious: Yes (Hospitalization, Other)
  Sender: FDA-Public Use
  Company Number: JP-ASTELLAS-2013JP005036

PATIENT
  Age: 46 Year
  Sex: Male

DRUGS (2)
  1. PROGRAF [Suspect]
     Indication: ALLOGENIC BONE MARROW TRANSPLANTATION THERAPY
     Route: 048
  2. CORTICOSTEROID NOS [Concomitant]
     Route: 048

REACTIONS (4)
  - Drug ineffective [Unknown]
  - Acute graft versus host disease [Recovering/Resolving]
  - Nocardiosis [Recovering/Resolving]
  - Subcutaneous abscess [Recovering/Resolving]
